FAERS Safety Report 8376289-3 (Version None)
Quarter: 2012Q1

REPORT INFORMATION
  Report Type: 
  Country: None (occurrence: None)
  Receive Date: 20120323
  Receipt Date: 20110812
  Transmission Date: 20120608
  Serious: Yes (Disabling)
  Sender: FDA-Public Use
  Company Number: 163-21880-11052782

PATIENT
  Age: 39 Year
  Sex: Male

DRUGS (4)
  1. DURAGESIC-100 [Concomitant]
  2. REVLIMID [Suspect]
     Indication: MULTIPLE MYELOMA
     Dosage: 25 MG, 1 IN 1 D, PO ; 15 MG, 1 IN 1 D, PO
     Route: 048
     Dates: start: 20110501
  3. REVLIMID [Suspect]
     Indication: MULTIPLE MYELOMA
     Dosage: 25 MG, 1 IN 1 D, PO ; 15 MG, 1 IN 1 D, PO
     Route: 048
     Dates: start: 20100901
  4. NEURONTIN [Concomitant]

REACTIONS (3)
  - HYPOACUSIS [None]
  - PAIN [None]
  - PAIN IN EXTREMITY [None]
